FAERS Safety Report 23220174 (Version 2)
Quarter: 2025Q2

REPORT INFORMATION
  Report Type: Spontaneous
  Country: US (occurrence: US)
  Receive Date: 20231123
  Receipt Date: 20250428
  Transmission Date: 20250717
  Serious: Yes (Other)
  Sender: AUROBINDO
  Company Number: US-AUROBINDO-AUR-APL-2023-073773

PATIENT
  Sex: Male

DRUGS (5)
  1. PREDNISONE [Suspect]
     Active Substance: PREDNISONE
     Indication: Palisaded neutrophilic granulomatous dermatitis
     Route: 065
  2. TRIAMCINOLONE [Suspect]
     Active Substance: TRIAMCINOLONE
     Indication: Palisaded neutrophilic granulomatous dermatitis
     Route: 065
  3. DAPSONE [Concomitant]
     Active Substance: DAPSONE
     Indication: Palisaded neutrophilic granulomatous dermatitis
     Route: 065
  4. CYCLOSPORINE [Concomitant]
     Active Substance: CYCLOSPORINE
     Indication: Palisaded neutrophilic granulomatous dermatitis
     Dosage: 100 MILLIGRAM, TWO TIMES A DAY
     Route: 065
  5. USTEKINUMAB [Concomitant]
     Active Substance: USTEKINUMAB
     Indication: Palisaded neutrophilic granulomatous dermatitis
     Route: 065

REACTIONS (1)
  - Chronic myelomonocytic leukaemia [Unknown]
